FAERS Safety Report 9445420 (Version 1)
Quarter: 2013Q3

REPORT INFORMATION
  Report Type: Spontaneous
  Country: IT (occurrence: None)
  Receive Date: 20130802
  Receipt Date: 20130802
  Transmission Date: 20140515
  Serious: Yes (Other)
  Sender: FDA-Public Use
  Company Number: GER/ITL/13/0033561

PATIENT
  Age: 41 Year
  Sex: Female

DRUGS (2)
  1. CITALOPRAM [Suspect]
     Indication: ANXIETY
     Dosage: 40 MG, 1 IN 1 TOTAL, ORAL
     Route: 048
     Dates: start: 20130519, end: 20130520
  2. LEXOTAN [Suspect]
     Indication: ANXIETY
     Dosage: 1 IN 1 TOTAL, ORAL
     Route: 048
     Dates: start: 20130519, end: 20130520

REACTIONS (3)
  - Somnolence [None]
  - Drug abuse [None]
  - Sopor [None]
